FAERS Safety Report 4277896-X (Version None)
Quarter: 2004Q1

REPORT INFORMATION
  Report Type: 
  Country: None (occurrence: None)
  Receive Date: 20040121
  Receipt Date: 20030613
  Transmission Date: 20041129
  Serious: Yes (Disabling)
  Sender: FDA-Public Use
  Company Number: 2003-04-0612

PATIENT
  Age: 27 Year
  Sex: Male

DRUGS (4)
  1. SUBUTEX [Suspect]
     Dosage: 9 MG QD
     Route: 048
     Dates: start: 20020103
  2. FUROSEMIDE [Suspect]
     Indication: RENAL FAILURE
     Route: 048
  3. FLIXOTIDE [Suspect]
     Dosage: 2 PUFFS BID
     Route: 048
     Dates: start: 20020112
  4. ZESTRIL [Suspect]
     Dosage: 20 MG QD
     Route: 048

REACTIONS (1)
  - SPERMATOZOA ABNORMAL [None]
